FAERS Safety Report 4433862-2 (Version None)
Quarter: 2004Q3

REPORT INFORMATION
  Report Type: 
  Country: None (occurrence: None)
  Receive Date: 20040826
  Receipt Date: 20021108
  Transmission Date: 20050211
  Serious: Yes (Hospitalization)
  Sender: FDA-Public Use
  Company Number: JP-GLAXOSMITHKLINE-B0113606B

PATIENT
  Age: 52 Year
  Sex: Male
  Weight: 55 kg

DRUGS (4)
  1. LAMIVUDINE [Suspect]
     Indication: HIV INFECTION
     Dosage: 150MG TWICE PER DAY
     Route: 048
     Dates: start: 19991101
  2. STAVUDINE [Suspect]
     Indication: HIV INFECTION
     Dosage: 60MGD PER DAY
     Route: 048
     Dates: start: 19991101
  3. NELFINAVIR [Suspect]
     Indication: HIV INFECTION
     Dosage: 2500MGD PER DAY
     Route: 048
     Dates: start: 19991101
  4. INTRON A [Suspect]
     Indication: HEPATITIS C
     Dosage: 3IU PER DAY
     Dates: start: 19991101, end: 20020305

REACTIONS (2)
  - DIABETES MELLITUS NON-INSULIN-DEPENDENT [None]
  - PROTHROMBIN TIME PROLONGED [None]
